FAERS Safety Report 11925254 (Version 1)
Quarter: 2016Q1

REPORT INFORMATION
  Report Type: Spontaneous
  Country: SE (occurrence: SE)
  Receive Date: 20160118
  Receipt Date: 20160118
  Transmission Date: 20160526
  Serious: Yes (Other)
  Sender: FDA-Public Use
  Company Number: SE-TEVA-626127ISR

PATIENT
  Age: 59 Year
  Sex: Male

DRUGS (1)
  1. AMLODIPINE [Suspect]
     Active Substance: AMLODIPINE BESYLATE
     Route: 048

REACTIONS (5)
  - Skin ulcer [Not Recovered/Not Resolved]
  - Sensory loss [Not Recovered/Not Resolved]
  - Contusion [Not Recovered/Not Resolved]
  - Rhinitis [Not Recovered/Not Resolved]
  - Epistaxis [Not Recovered/Not Resolved]
